FAERS Safety Report 11114525 (Version 5)
Quarter: 2015Q3

REPORT INFORMATION
  Report Type: Report from Study
  Country: JP (occurrence: JP)
  Receive Date: 20150515
  Receipt Date: 20150819
  Transmission Date: 20151125
  Serious: Yes (Hospitalization)
  Sender: FDA-Public Use
  Company Number: JP-ROCHE-1576611

PATIENT
  Age: 42 Year
  Sex: Female
  Weight: 55 kg

DRUGS (25)
  1. VEMURAFENIB [Suspect]
     Active Substance: VEMURAFENIB
     Indication: MALIGNANT MELANOMA
     Dosage: DOSAGE IS UNCERTAIN.
     Route: 048
     Dates: start: 20150515, end: 20150518
  2. VEMURAFENIB [Suspect]
     Active Substance: VEMURAFENIB
     Indication: MALIGNANT MELANOMA
     Route: 048
     Dates: start: 20150317, end: 20150329
  3. VEMURAFENIB [Suspect]
     Active Substance: VEMURAFENIB
     Indication: MALIGNANT MELANOMA
     Dosage: DOSAGE IS UNCERTAIN.
     Route: 048
     Dates: start: 20150519, end: 20150520
  4. ALLEGRA [Concomitant]
     Active Substance: FEXOFENADINE HYDROCHLORIDE
     Indication: PROPHYLAXIS
     Route: 048
  5. POLARAMINE [Concomitant]
     Active Substance: DEXCHLORPHENIRAMINE MALEATE
     Indication: PROPHYLAXIS
     Route: 041
     Dates: start: 20150507, end: 20150507
  6. FUNGIZONE [Concomitant]
     Active Substance: AMPHOTERICIN B
     Indication: PROPHYLAXIS
     Route: 048
     Dates: start: 20150410, end: 20150415
  7. NEO-MINOPHAGEN C [Concomitant]
     Active Substance: AMMONIUM GLYCYRRHIZATE
     Indication: PROPHYLAXIS
     Route: 041
     Dates: start: 20150507
  8. FLUMETHOLON [Concomitant]
     Active Substance: FLUOROMETHOLONE
     Indication: PROPHYLAXIS
     Dosage: EYE DROP
     Route: 047
     Dates: start: 20150507, end: 20150520
  9. VEMURAFENIB [Suspect]
     Active Substance: VEMURAFENIB
     Indication: MALIGNANT MELANOMA
     Dosage: DOSAGE IS UNCERTAIN.
     Route: 048
     Dates: start: 20150507, end: 20150507
  10. BAKTAR [Concomitant]
     Active Substance: SULFAMETHOXAZOLE\TRIMETHOPRIM
     Indication: PROPHYLAXIS
     Route: 048
     Dates: start: 20150331
  11. VEMURAFENIB [Suspect]
     Active Substance: VEMURAFENIB
     Indication: MALIGNANT MELANOMA
     Dosage: DOSAGE IS UNCERTAIN.
     Route: 048
     Dates: start: 20150513, end: 20150514
  12. VEMURAFENIB [Suspect]
     Active Substance: VEMURAFENIB
     Indication: MALIGNANT MELANOMA
     Dosage: DOSAGE IS UNCERTAIN.
     Route: 048
     Dates: start: 20150608, end: 20150621
  13. LOXOPROFEN [Concomitant]
     Active Substance: LOXOPROFEN
     Indication: PROPHYLAXIS
     Dosage: AT THE PAIN
     Route: 048
  14. MAGMITT [Concomitant]
     Active Substance: MAGNESIUM OXIDE
     Route: 048
     Dates: start: 20150405
  15. HIRNAMIN [Concomitant]
     Active Substance: PHENOTHIAZINE
     Route: 048
     Dates: start: 20150420, end: 20150425
  16. PREDONINE [Concomitant]
     Active Substance: PREDNISOLONE\PREDNISOLONE ACETATE\PREDNISOLONE SODIUM SUCCINATE
     Indication: PROPHYLAXIS
     Dosage: GRADUAL DECREASE FROM 60
     Route: 048
     Dates: start: 20150401
  17. POLARAMINE [Concomitant]
     Active Substance: DEXCHLORPHENIRAMINE MALEATE
     Indication: PROPHYLAXIS
     Route: 041
     Dates: start: 20150330, end: 20150414
  18. REBAMIPIDE [Concomitant]
     Active Substance: REBAMIPIDE
     Indication: PROPHYLAXIS
     Dosage: AT THE PAIN
     Route: 048
  19. VEMURAFENIB [Suspect]
     Active Substance: VEMURAFENIB
     Indication: MALIGNANT MELANOMA
     Dosage: DOSAGE IS UNCERTAIN.
     Route: 048
     Dates: start: 20150521, end: 20150527
  20. VEMURAFENIB [Suspect]
     Active Substance: VEMURAFENIB
     Indication: MALIGNANT MELANOMA
     Dosage: DOSAGE IS UNCERTAIN.
     Route: 048
     Dates: start: 20150622
  21. PARIET [Concomitant]
     Active Substance: RABEPRAZOLE SODIUM
     Indication: PROPHYLAXIS
     Route: 048
     Dates: start: 20150401
  22. BROTIZOLAM [Concomitant]
     Active Substance: BROTIZOLAM
     Dosage: BROTIZOLAM OD
     Route: 048
     Dates: start: 20150420, end: 20150429
  23. PREDONINE [Concomitant]
     Active Substance: PREDNISOLONE\PREDNISOLONE ACETATE\PREDNISOLONE SODIUM SUCCINATE
     Indication: PROPHYLAXIS
     Route: 041
     Dates: start: 20150330, end: 20150331
  24. PREDONINE [Concomitant]
     Active Substance: PREDNISOLONE\PREDNISOLONE ACETATE\PREDNISOLONE SODIUM SUCCINATE
     Indication: PROPHYLAXIS
     Dosage: GRADUAL DECREASE FROM 60
     Route: 048
     Dates: start: 20150401, end: 20150507
  25. NEO-MINOPHAGEN C [Concomitant]
     Active Substance: AMMONIUM GLYCYRRHIZATE
     Indication: PROPHYLAXIS
     Route: 041
     Dates: start: 20150527, end: 20150527

REACTIONS (5)
  - Myalgia [Unknown]
  - Rash [Recovering/Resolving]
  - Hypersensitivity [Recovering/Resolving]
  - Arthralgia [Recovering/Resolving]
  - Myalgia [Recovering/Resolving]

NARRATIVE: CASE EVENT DATE: 20150324
